FAERS Safety Report 4325803-3 (Version None)
Quarter: 2004Q1

REPORT INFORMATION
  Report Type: 
  Country: None (occurrence: None)
  Receive Date: 20040324
  Receipt Date: 20040308
  Transmission Date: 20041129
  Serious: Yes (Hospitalization, Other)
  Sender: FDA-Public Use
  Company Number: US_0403101408

PATIENT
  Age: 10 Year
  Sex: Female

DRUGS (3)
  1. FLUOXETINE HYDROCHLORIDE-0RAL (FLUOXETINE) [Suspect]
     Dates: start: 20030411
  2. HYDROCORTISONE ACETATE [Concomitant]
  3. ONDANSETRON HCL [Concomitant]

REACTIONS (5)
  - DIARRHOEA [None]
  - GASTROINTESTINAL HAEMORRHAGE [None]
  - NEOPLASM [None]
  - NEUTROPHIL COUNT DECREASED [None]
  - POOR VENOUS ACCESS [None]
